FAERS Safety Report 20095816 (Version 1)
Quarter: 2021Q4

REPORT INFORMATION
  Report Type: Spontaneous
  Country: US (occurrence: None)
  Receive Date: 20211120
  Receipt Date: 20211120
  Transmission Date: 20220303
  Serious: Yes (Life-Threatening)
  Sender: FDA-Public Use
  Company Number: None

PATIENT
  Age: 53 Year
  Sex: Male
  Weight: 87.5 kg

DRUGS (3)
  1. BARICITINIB [Suspect]
     Active Substance: BARICITINIB
     Indication: COVID-19
     Dosage: FREQUENCY : DAILY;?
     Route: 048
  2. Dexamethasone 6mg [Concomitant]
     Dates: start: 20211104, end: 20211113
  3. Dexamethasone 12mg [Concomitant]
     Dates: start: 20211103, end: 20211103

REACTIONS (3)
  - Enterobacter sepsis [None]
  - Enterobacter test positive [None]
  - Infectious pleural effusion [None]

NARRATIVE: CASE EVENT DATE: 20211116
